FAERS Safety Report 6063209-X (Version None)
Quarter: 2009Q1

REPORT INFORMATION
  Report Type: 
  Country: None (occurrence: None)
  Receive Date: 20090121
  Receipt Date: 20080714
  Transmission Date: 20090719
  Serious: Yes (Hospitalization)
  Sender: FDA-Public Use
  Company Number: US-WYE-H05031008

PATIENT
  Age: 63 Year
  Sex: Female
  Weight: 64.47 kg

DRUGS (3)
  1. PREMPRO [Suspect]
     Indication: OESTROGEN THERAPY
     Dosage: 0.625 MG - 2.5 MG; UNSPECIFIED FREQUENCY, ORAL
     Route: 048
     Dates: end: 20080401
  2. PREMPRO [Suspect]
     Indication: OESTROGEN THERAPY
     Dosage: 0.625 MG - 2.5 MG; UNSPECIFIED FREQUENCY, ORAL
     Route: 048
     Dates: start: 20080401, end: 20080611
  3. MULTI-VITAMINS [Concomitant]

REACTIONS (1)
  - PULMONARY EMBOLISM [None]
